FAERS Safety Report 20380239 (Version 19)
Quarter: 2023Q4

REPORT INFORMATION
  Report Type: Spontaneous
  Country: CA (occurrence: CA)
  Receive Date: 20220126
  Receipt Date: 20231214
  Transmission Date: 20240109
  Serious: Yes (Other)
  Sender: FDA-Public Use
  Company Number: CA-CELLTRION INC.-2021CA002307

PATIENT

DRUGS (24)
  1. INFLECTRA [Suspect]
     Active Substance: INFLIXIMAB-DYYB
     Indication: Colitis ulcerative
     Dosage: 400 MG, 0 , 2, 6, THEN EVERY 8 WEEKS
     Route: 042
     Dates: start: 20201103, end: 20201103
  2. INFLECTRA [Suspect]
     Active Substance: INFLIXIMAB-DYYB
     Dosage: 400 MG, 0 , 2, 6, THEN EVERY 8 WEEKS
     Route: 042
     Dates: start: 20201103, end: 20220601
  3. INFLECTRA [Suspect]
     Active Substance: INFLIXIMAB-DYYB
     Dosage: 400 MG, 0 , 2, 6, THEN EVERY 8 WEEKS
     Route: 042
     Dates: start: 20201216, end: 20201216
  4. INFLECTRA [Suspect]
     Active Substance: INFLIXIMAB-DYYB
     Dosage: 400 MG, 0 , 2, 6, THEN EVERY 8 WEEKS
     Route: 042
     Dates: start: 20210210, end: 20210210
  5. INFLECTRA [Suspect]
     Active Substance: INFLIXIMAB-DYYB
     Dosage: 400 MG, 0 , 2, 6, THEN EVERY 8 WEEKS
     Route: 042
     Dates: start: 20210414, end: 20210414
  6. INFLECTRA [Suspect]
     Active Substance: INFLIXIMAB-DYYB
     Dosage: 400 MG, 0 , 2, 6, THEN EVERY 8 WEEKS
     Route: 042
     Dates: start: 20211124, end: 20211124
  7. INFLECTRA [Suspect]
     Active Substance: INFLIXIMAB-DYYB
     Dosage: 400 MG, 0 , 2, 6, THEN EVERY 8 WEEKS
     Route: 042
     Dates: start: 20220210, end: 20220210
  8. INFLECTRA [Suspect]
     Active Substance: INFLIXIMAB-DYYB
     Dosage: 400 MG, 0 , 2, 6, THEN EVERY 8 WEEKS
     Route: 042
     Dates: start: 20220406, end: 20220406
  9. INFLECTRA [Suspect]
     Active Substance: INFLIXIMAB-DYYB
     Dosage: 400 MG, 0 , 2, 6, THEN EVERY 8 WEEKS
     Route: 042
     Dates: start: 20220601, end: 20220601
  10. INFLECTRA [Suspect]
     Active Substance: INFLIXIMAB-DYYB
     Dosage: 400 MG, EVERY 6 WEEKS
     Route: 042
     Dates: start: 20220727
  11. INFLECTRA [Suspect]
     Active Substance: INFLIXIMAB-DYYB
     Dosage: 400 MG, EVERY 6 WEEKS
     Route: 042
     Dates: start: 20220727, end: 20230404
  12. INFLECTRA [Suspect]
     Active Substance: INFLIXIMAB-DYYB
     Dosage: 400 MG, EVERY 6 WEEKS
     Route: 042
     Dates: start: 20220909
  13. INFLECTRA [Suspect]
     Active Substance: INFLIXIMAB-DYYB
     Dosage: 400 MG , EVERY 6 WEEKS
     Route: 042
     Dates: start: 20221019
  14. INFLECTRA [Suspect]
     Active Substance: INFLIXIMAB-DYYB
     Dosage: 400 MG , EVERY 6 WEEKS
     Route: 042
     Dates: start: 20221130
  15. INFLECTRA [Suspect]
     Active Substance: INFLIXIMAB-DYYB
     Dosage: 400 MG , EVERY 6 WEEKS
     Route: 042
     Dates: start: 20230111
  16. INFLECTRA [Suspect]
     Active Substance: INFLIXIMAB-DYYB
     Dosage: 400 MG , EVERY 6 WEEKS
     Route: 042
     Dates: start: 20230222
  17. INFLECTRA [Suspect]
     Active Substance: INFLIXIMAB-DYYB
     Dosage: 400 MG, EVERY 6 WEEK
     Route: 042
     Dates: start: 20230404
  18. INFLECTRA [Suspect]
     Active Substance: INFLIXIMAB-DYYB
     Dosage: 800 MG, EVERY 6 WEEKS
     Route: 042
     Dates: start: 20230524
  19. INFLECTRA [Suspect]
     Active Substance: INFLIXIMAB-DYYB
     Dosage: 800 MG, EVERY 6 WEEKS
     Route: 042
     Dates: start: 20230628
  20. INFLECTRA [Suspect]
     Active Substance: INFLIXIMAB-DYYB
     Dosage: 800 MG, EVERY 6 WEEKS
     Route: 042
     Dates: start: 20230802
  21. INFLECTRA [Suspect]
     Active Substance: INFLIXIMAB-DYYB
     Dosage: 800 MG, EVERY 6 WEEKS
     Route: 042
     Dates: start: 20230913
  22. INFLECTRA [Suspect]
     Active Substance: INFLIXIMAB-DYYB
     Dosage: 800 MG, EVERY 6 WEEKS
     Route: 042
     Dates: start: 20231025
  23. INFLECTRA [Suspect]
     Active Substance: INFLIXIMAB-DYYB
     Dosage: 800 MG, EVERY 6 WEEKS
     Route: 042
     Dates: start: 20231206
  24. PREDNISONE [Concomitant]
     Active Substance: PREDNISONE
     Dosage: 5 MG, FREQUENCY: UNKNOWN
     Route: 065

REACTIONS (20)
  - Weight fluctuation [Unknown]
  - Condition aggravated [Recovered/Resolved]
  - Herpes zoster [Recovered/Resolved]
  - Pyrexia [Recovering/Resolving]
  - COVID-19 [Recovering/Resolving]
  - Oropharyngeal pain [Recovering/Resolving]
  - Chills [Recovering/Resolving]
  - Hyperhidrosis [Recovering/Resolving]
  - Dysphagia [Recovering/Resolving]
  - Decreased appetite [Unknown]
  - Weight decreased [Recovering/Resolving]
  - Headache [Recovering/Resolving]
  - Cough [Recovering/Resolving]
  - Myalgia [Recovering/Resolving]
  - Stress at work [Unknown]
  - Off label use [Unknown]
  - Off label use [Unknown]
  - Inappropriate schedule of product administration [Unknown]
  - Off label use [Unknown]
  - Intentional product use issue [Unknown]

NARRATIVE: CASE EVENT DATE: 20201216
